FAERS Safety Report 7501055-8 (Version None)
Quarter: 2011Q2

REPORT INFORMATION
  Report Type: 
  Country: None (occurrence: None)
  Receive Date: 20110524
  Receipt Date: 20100604
  Transmission Date: 20111010
  Serious: No
  Sender: FDA-Public Use
  Company Number: US-NOVEN-ALL1-2010-03198

PATIENT

DRUGS (3)
  1. ALBUTEROL [Concomitant]
     Dosage: UNK, AS REQ'D
     Route: 055
     Dates: start: 20010101
  2. DAYTRANA [Suspect]
     Dosage: 60 MG, 1X/DAY:QD (TWO 30 MG. PATCHES)
     Route: 062
     Dates: start: 20080101
  3. SERTRALINE HYDROCHLORIDE [Concomitant]
     Dosage: 50 MG, 1X/DAY:QD
     Route: 048
     Dates: start: 20090101

REACTIONS (3)
  - OFF LABEL USE [None]
  - OVERDOSE [None]
  - NO ADVERSE EVENT [None]
